FAERS Safety Report 17624462 (Version 9)
Quarter: 2020Q4

REPORT INFORMATION
  Report Type: Report from Study
  Country: CL (occurrence: CL)
  Receive Date: 20200403
  Receipt Date: 20201124
  Transmission Date: 20210113
  Serious: Yes (Hospitalization)
  Sender: FDA-Public Use
  Company Number: CL-EISAI MEDICAL RESEARCH-EC-2020-072748

PATIENT
  Age: 60 Year
  Sex: Female
  Weight: 112 kg

DRUGS (19)
  1. PREGABALIN. [Concomitant]
     Active Substance: PREGABALIN
     Dates: start: 20180101
  2. VITAMIN B (UNSPECIFIED) [Concomitant]
     Active Substance: VITAMIN B
     Dates: start: 20191213
  3. DESLORATADINE. [Concomitant]
     Active Substance: DESLORATADINE
     Dates: start: 20180101
  4. VALSARTAN. [Concomitant]
     Active Substance: VALSARTAN
     Dates: start: 20150101
  5. PEMBROLIZUMAB. [Suspect]
     Active Substance: PEMBROLIZUMAB
     Route: 042
     Dates: start: 20200408
  6. AMLODIPINE [Concomitant]
     Active Substance: AMLODIPINE BESYLATE
     Dates: start: 20150101
  7. COLLAGEN [Concomitant]
     Active Substance: COLLAGEN
     Dates: start: 20200113
  8. ESOMEPRAZOLE. [Concomitant]
     Active Substance: ESOMEPRAZOLE MAGNESIUM
     Dates: start: 20191010
  9. PEMETREXED. [Suspect]
     Active Substance: PEMETREXED
     Indication: NON-SMALL CELL LUNG CANCER METASTATIC
     Route: 042
     Dates: start: 20191011, end: 20200214
  10. PEMETREXED. [Suspect]
     Active Substance: PEMETREXED
     Route: 042
     Dates: start: 20200306, end: 20200306
  11. PEMETREXED. [Suspect]
     Active Substance: PEMETREXED
     Route: 042
     Dates: start: 20200408
  12. FOLIC ACID. [Concomitant]
     Active Substance: FOLIC ACID
     Dates: start: 20191004
  13. DICLOFENAC DIETHYLAMINE [Concomitant]
     Active Substance: DICLOFENAC DIETHYLAMINE
     Dates: start: 20200113
  14. METFORMIN [Concomitant]
     Active Substance: METFORMIN HYDROCHLORIDE
     Dates: start: 19910101
  15. LENVATINIB [Suspect]
     Active Substance: LENVATINIB
     Indication: NON-SMALL CELL LUNG CANCER METASTATIC
     Route: 048
     Dates: start: 20191011
  16. PEMBROLIZUMAB. [Suspect]
     Active Substance: PEMBROLIZUMAB
     Indication: NON-SMALL CELL LUNG CANCER METASTATIC
     Route: 042
     Dates: start: 20191011, end: 20200214
  17. PEMBROLIZUMAB. [Suspect]
     Active Substance: PEMBROLIZUMAB
     Route: 042
     Dates: start: 20200306, end: 20200306
  18. CARBOPLATIN. [Concomitant]
     Active Substance: CARBOPLATIN
     Dates: start: 20191011, end: 20191213
  19. PAROXETINE. [Concomitant]
     Active Substance: PAROXETINE
     Dates: start: 20150101

REACTIONS (1)
  - Bronchitis viral [Recovered/Resolved]

NARRATIVE: CASE EVENT DATE: 20200327
